FAERS Safety Report 9394937 (Version 2)
Quarter: 2013Q4

REPORT INFORMATION
  Report Type: Spontaneous
  Country: JP (occurrence: JP)
  Receive Date: 20130711
  Receipt Date: 20131016
  Transmission Date: 20140711
  Serious: Yes (Hospitalization)
  Sender: FDA-Public Use
  Company Number: JP-BAYER-2013-083451

PATIENT
  Age: 78 Year
  Sex: Male
  Weight: 69.39 kg

DRUGS (7)
  1. NEXAVAR [Suspect]
     Indication: HEPATOCELLULAR CARCINOMA
     Dosage: 400 MG, BID
     Route: 048
     Dates: start: 20130408
  2. ZETIA [Concomitant]
     Dosage: DAILY DOSE 10 MG
     Route: 048
     Dates: start: 20110902
  3. LIVACT [Concomitant]
     Dosage: DAILY DOSE 3 DF
     Route: 048
     Dates: start: 20111028
  4. AZILSARTAN [Concomitant]
     Dosage: DAILY DOSE 20 MG
     Route: 048
     Dates: start: 20130508
  5. CLARITIN [Concomitant]
     Dosage: DAILY DOSE 10 MG
     Route: 048
     Dates: start: 20120307
  6. CONIEL [Concomitant]
     Dosage: DAILY DOSE 4 MG
     Route: 048
     Dates: start: 20130415
  7. UREPEARL [Concomitant]
     Dosage: UNK
     Route: 061
     Dates: start: 20130408

REACTIONS (2)
  - Appendicitis [Recovered/Resolved]
  - Peritonitis [Recovered/Resolved]
